FAERS Safety Report 5934506-0 (Version None)
Quarter: 2008Q4

REPORT INFORMATION
  Report Type: 
  Country: None (occurrence: None)
  Receive Date: 20081029
  Receipt Date: 20081015
  Transmission Date: 20090506
  Serious: No
  Sender: FDA-Public Use
  Company Number: US-ELI_LILLY_AND_COMPANY-US200810003561

PATIENT
  Age: 51 Year
  Sex: Female

DRUGS (4)
  1. CYMBALTA [Suspect]
     Indication: DEPRESSION
     Dosage: 20 MG, 2/D
     Route: 048
     Dates: start: 20080919
  2. DOXEPIN HCL [Concomitant]
  3. COLESTID [Concomitant]
  4. BUSPAR [Concomitant]

REACTIONS (1)
  - HEPATIC ENZYME INCREASED [None]
